FAERS Safety Report 7981324-8 (Version None)
Quarter: 2011Q4

REPORT INFORMATION
  Report Type: 
  Country: None (occurrence: None)
  Receive Date: 20111212
  Receipt Date: 20111130
  Transmission Date: 20120403
  Serious: Yes (Other)
  Sender: FDA-Public Use
  Company Number: 1123650

PATIENT
  Age: 24 Year
  Sex: Male

DRUGS (7)
  1. TEICOPLANIN [Suspect]
     Indication: ANTIBIOTIC PROPHYLAXIS
     Dosage: INTRAVENOUS (NOT OTHERWISE SPECIFIED)
     Route: 042
  2. NEUPOGEN [Suspect]
     Indication: LYMPHOCYTIC LEUKAEMIA
  3. FLUDARABINE PHOSPHATE [Suspect]
     Indication: LYMPHOCYTIC LEUKAEMIA
  4. IDARUBICIN HCL [Suspect]
     Indication: LYMPHOCYTIC LEUKAEMIA
  5. AMPHOTERICIN B [Concomitant]
  6. MEROPENEM [Suspect]
     Indication: PROPHYLAXIS
     Dosage: INTRAVENOUS (NOT OTHERWISE SPECIFIED)
     Route: 042
  7. CYTARABINE [Suspect]
     Indication: LYMPHOCYTIC LEUKAEMIA

REACTIONS (5)
  - SKIN LESION [None]
  - FUSARIUM INFECTION [None]
  - LEUKAEMIA RECURRENT [None]
  - NEUTROPENIA [None]
  - LEUKOCYTOCLASTIC VASCULITIS [None]
